FAERS Safety Report 5564598-2 (Version None)
Quarter: 2007Q4

REPORT INFORMATION
  Report Type: 
  Country: None (occurrence: None)
  Receive Date: 20071218
  Receipt Date: 20071211
  Transmission Date: 20080405
  Serious: Yes (Death)
  Sender: FDA-Public Use
  Company Number: FR-AVENTIS-200713979FR

PATIENT
  Age: 75 Year
  Sex: Male

DRUGS (2)
  1. TAXOTERE [Suspect]
     Route: 042
     Dates: start: 20070403, end: 20070612
  2. ANDROCUR [Concomitant]

REACTIONS (2)
  - INTERSTITIAL LUNG DISEASE [None]
  - RESPIRATORY FAILURE [None]
